FAERS Safety Report 22178083 (Version 1)
Quarter: 2023Q2

REPORT INFORMATION
  Report Type: Spontaneous
  Country: US (occurrence: US)
  Receive Date: 20230405
  Receipt Date: 20230405
  Transmission Date: 20230721
  Serious: No
  Sender: FDA-Public Use
  Company Number: US-JNJFOC-20230368590

PATIENT
  Age: 55 Year
  Sex: Female

DRUGS (1)
  1. WOMENS ROGAINE UNSCENTED [Suspect]
     Active Substance: MINOXIDIL
     Indication: Alopecia
     Dosage: 1/4 CAPFUL
     Route: 065
     Dates: start: 20230308, end: 2023

REACTIONS (3)
  - Application site erythema [Recovered/Resolved]
  - Application site pain [Recovered/Resolved]
  - Underdose [Unknown]

NARRATIVE: CASE EVENT DATE: 20230308
